FAERS Safety Report 13829688 (Version 2)
Quarter: 2017Q4

REPORT INFORMATION
  Report Type: Report from Study
  Country: IN (occurrence: IN)
  Receive Date: 20170803
  Receipt Date: 20171108
  Transmission Date: 20180320
  Serious: Yes (Death, Hospitalization)
  Sender: FDA-Public Use
  Company Number: IN-BAYER-2017-145715

PATIENT
  Age: 60 Year
  Sex: Female

DRUGS (2)
  1. IXAROLA 20 MG [Suspect]
     Active Substance: RIVAROXABAN
     Indication: GANGRENE
     Dosage: 20 MG, QD
     Route: 048
     Dates: start: 20170426
  2. CIPROFLOXACIN. [Suspect]
     Active Substance: CIPROFLOXACIN
     Indication: URINARY TRACT INFECTION
     Dosage: 250 MG, BID
     Route: 048
     Dates: start: 20120512, end: 20120517

REACTIONS (7)
  - Bone cancer [Fatal]
  - Hepatic cancer [Fatal]
  - Off label use [None]
  - Platelet count decreased [None]
  - Lung neoplasm malignant [Fatal]
  - Dyspnoea [None]
  - Product use in unapproved indication [None]

NARRATIVE: CASE EVENT DATE: 20170627
